FAERS Safety Report 5733106-5 (Version None)
Quarter: 2008Q2

REPORT INFORMATION
  Report Type: 
  Country: None (occurrence: None)
  Receive Date: 20080509
  Receipt Date: 20080428
  Transmission Date: 20081010
  Serious: Yes (Other)
  Sender: FDA-Public Use
  Company Number: GB-WYE-G01477208

PATIENT
  Sex: Female

DRUGS (2)
  1. EFFEXOR [Suspect]
     Route: 048
     Dates: start: 20071025, end: 20080101
  2. EFFEXOR [Suspect]
     Dosage: 37.5MG, FREQUENCY UNKNOWN
     Dates: start: 20080428

REACTIONS (1)
  - DRUG EXPOSURE DURING PREGNANCY [None]
